FAERS Safety Report 9398672 (Version 1)
Quarter: 2013Q3

REPORT INFORMATION
  Report Type: Spontaneous
  Country: CN (occurrence: CN)
  Receive Date: 20130712
  Receipt Date: 20130712
  Transmission Date: 20140515
  Serious: Yes (Other)
  Sender: FDA-Public Use
  Company Number: CN-BAXTER-2013BAX026595

PATIENT
  Age: 66 Year
  Sex: Female
  Weight: 54 kg

DRUGS (2)
  1. 20% MANNITOL INJECTION [Suspect]
     Indication: INTRAOCULAR PRESSURE INCREASED
     Route: 041
     Dates: start: 20110920, end: 20110920
  2. INSULIN [Suspect]
     Indication: PRODUCT USED FOR UNKNOWN INDICATION
     Dosage: 100-120GTT
     Route: 041
     Dates: start: 20110920, end: 20110920

REACTIONS (4)
  - Pyrexia [Recovered/Resolved]
  - Chills [Recovered/Resolved]
  - Hypoaesthesia [Recovered/Resolved]
  - Pain [Recovered/Resolved]
